FAERS Safety Report 26120079 (Version 2)
Quarter: 2025Q4

REPORT INFORMATION
  Report Type: Report from Study
  Country: EU (occurrence: EU)
  Receive Date: 20251204
  Receipt Date: 20251222
  Transmission Date: 20260118
  Serious: Yes (Other)
  Sender: ABBVIE
  Company Number: EU-ABBVIE-6538516

PATIENT
  Age: 74 Year
  Sex: Male

DRUGS (3)
  1. FOSCARBIDOPA\FOSLEVODOPA [Suspect]
     Active Substance: FOSCARBIDOPA\FOSLEVODOPA
     Indication: Parkinson^s disease
     Dosage: CRN: 0.30 ML/H, CR: 0.23 ML/H, CRH: 0.25 ML/H, ED: 0.15 ML. [LOCKOUT TIME ED: 1H]
     Route: 058
     Dates: start: 20251104, end: 202511
  2. FOSCARBIDOPA\FOSLEVODOPA [Suspect]
     Active Substance: FOSCARBIDOPA\FOSLEVODOPA
     Dosage: CRN: 0.29 ML/H, CR: 0.25 ML/H, CRH: 0.31 ML/H, ED: 0.15 ML. [LOCKOUT TIME ED: 1H]
     Route: 058
     Dates: start: 202511, end: 202511
  3. FOSCARBIDOPA\FOSLEVODOPA [Suspect]
     Active Substance: FOSCARBIDOPA\FOSLEVODOPA
     Dosage: CRL: 0.26ML/H, CR: 0.27 ML/H, CRH: 0.30 ML/H, ED: 0.15 ML
     Route: 058
     Dates: start: 202511

REACTIONS (5)
  - Fungal abdominal infection [Not Recovered/Not Resolved]
  - On and off phenomenon [Unknown]
  - Infusion site haemorrhage [Not Recovered/Not Resolved]
  - Infusion site pain [Not Recovered/Not Resolved]
  - Infusion site erythema [Not Recovered/Not Resolved]

NARRATIVE: CASE EVENT DATE: 20250101
